FAERS Safety Report 10339647 (Version 1)
Quarter: 2014Q3

REPORT INFORMATION
  Report Type: Spontaneous
  Country: CA (occurrence: None)
  Receive Date: 20140723
  Receipt Date: 20140723
  Transmission Date: 20150326
  Serious: Yes (Hospitalization)
  Sender: FDA-Public Use
  Company Number: None

PATIENT
  Age: 53 Year
  Sex: Female
  Weight: 60.3 kg

DRUGS (1)
  1. CYTARABINE. [Suspect]
     Active Substance: CYTARABINE
     Dates: end: 20140609

REACTIONS (8)
  - Subarachnoid haemorrhage [None]
  - Renal failure acute [None]
  - Septic shock [None]
  - Hypotension [None]
  - Cardiomyopathy [None]
  - Acute hepatic failure [None]
  - Dyspnoea [None]
  - Pneumonia klebsiella [None]

NARRATIVE: CASE EVENT DATE: 20140615
